FAERS Safety Report 25017918 (Version 1)
Quarter: 2025Q1

REPORT INFORMATION
  Report Type: Spontaneous
  Country: DE (occurrence: DE)
  Receive Date: 20250227
  Receipt Date: 20250227
  Transmission Date: 20250409
  Serious: Yes (Death, Life-Threatening, Hospitalization, Other)
  Sender: AUROBINDO
  Company Number: DE-AUROBINDO-AUR-APL-2012-01320

PATIENT
  Age: 70 Year
  Sex: Male

DRUGS (15)
  1. MIRTAZAPINE [Suspect]
     Active Substance: MIRTAZAPINE
     Indication: Depression
     Dosage: 45 MILLIGRAM, ONCE A DAY
     Route: 048
     Dates: start: 201111, end: 20111117
  2. MIRTAZAPINE [Suspect]
     Active Substance: MIRTAZAPINE
     Dosage: 30 MILLIGRAM, ONCE A DAY
     Route: 048
     Dates: start: 20111118, end: 20111121
  3. AMLODIPINE [Suspect]
     Active Substance: AMLODIPINE BESYLATE
     Indication: Product used for unknown indication
     Dosage: 5 MILLIGRAM, ONCE A DAY
     Route: 048
     Dates: end: 20111121
  4. NALOXONE HYDROCHLORIDE\TILIDINE HYDROCHLORIDE [Suspect]
     Active Substance: NALOXONE HYDROCHLORIDE\TILIDINE HYDROCHLORIDE
     Indication: Product used for unknown indication
     Route: 048
     Dates: end: 20111121
  5. TILIDINE [Suspect]
     Active Substance: TILIDINE
     Indication: Product used for unknown indication
     Dosage: 208 MILLIGRAM, ONCE A DAY
     Route: 048
     Dates: end: 20111121
  6. TILIDINE [Suspect]
     Active Substance: TILIDINE
     Dosage: 208 MILLIGRAM, ONCE A DAY
     Route: 048
     Dates: start: 20111122
  7. MELPERONE [Suspect]
     Active Substance: MELPERONE
     Indication: Product used for unknown indication
     Route: 048
     Dates: end: 20111117
  8. MELPERONE [Suspect]
     Active Substance: MELPERONE
     Route: 048
     Dates: start: 20111118, end: 20111121
  9. DOMINAL (PROTHIPENDYL HYDROCHLORIDE) [Suspect]
     Active Substance: PROTHIPENDYL HYDROCHLORIDE
     Indication: Product used for unknown indication
     Dosage: 40 MG,UNK,
     Route: 048
     Dates: start: 20111120, end: 20111120
  10. RISPERDAL [Suspect]
     Active Substance: RISPERIDONE
     Indication: Product used for unknown indication
     Dosage: 1.5 MILLIGRAM, ONCE A DAY
     Route: 048
     Dates: end: 20111117
  11. RISPERDAL [Suspect]
     Active Substance: RISPERIDONE
     Dosage: 2 MILLIGRAM, ONCE A DAY
     Route: 048
     Dates: start: 20111118, end: 20111121
  12. PANTOZOL [Concomitant]
     Active Substance: PANTOPRAZOLE SODIUM
     Indication: Product used for unknown indication
     Dosage: 20 MILLIGRAM, ONCE A DAY
     Route: 048
     Dates: start: 20111118, end: 20111121
  13. METFORMIN [Concomitant]
     Active Substance: METFORMIN HYDROCHLORIDE
     Indication: Product used for unknown indication
     Dosage: 1000 MILLIGRAM, ONCE A DAY
     Route: 048
     Dates: end: 20111121
  14. Jonosteril [Concomitant]
     Indication: Product used for unknown indication
     Route: 042
     Dates: start: 20111121, end: 20111121
  15. IBUPROFEN [Concomitant]
     Active Substance: IBUPROFEN
     Indication: Product used for unknown indication
     Dosage: 1200 MG,UNK,
     Route: 048
     Dates: end: 20111121

REACTIONS (8)
  - Pneumonia [Fatal]
  - Hallucination, visual [Fatal]
  - Hallucination [Fatal]
  - Altered state of consciousness [Fatal]
  - Increased bronchial secretion [Fatal]
  - Acute kidney injury [Unknown]
  - Soliloquy [Unknown]
  - Insomnia [Unknown]

NARRATIVE: CASE EVENT DATE: 20111118
